FAERS Safety Report 10052451 (Version 1)
Quarter: 2014Q2

REPORT INFORMATION
  Report Type: Spontaneous
  Country: CA (occurrence: CA)
  Receive Date: 20140402
  Receipt Date: 20140402
  Transmission Date: 20141212
  Serious: Yes (Death)
  Sender: FDA-Public Use
  Company Number: CA-ASTELLAS-2014US003249

PATIENT
  Age: 78 Year
  Sex: Male

DRUGS (2)
  1. ADVAGRAF [Suspect]
     Indication: RENAL TRANSPLANT
     Dosage: 1.5 MG, UID/QD
     Route: 048
  2. ADVAGRAF [Suspect]
     Dosage: 5 MG OR 10 MG DAILY
     Route: 048

REACTIONS (1)
  - Death [Fatal]
